FAERS Safety Report 7163223-7 (Version None)
Quarter: 2010Q4

REPORT INFORMATION
  Report Type: 
  Country: None (occurrence: None)
  Receive Date: 20101215
  Receipt Date: 20100316
  Transmission Date: 20110411
  Serious: Yes (Other)
  Sender: FDA-Public Use
  Company Number: US-PFIZER INC-2010034514

PATIENT
  Sex: Female
  Weight: 75.7 kg

DRUGS (6)
  1. LYRICA [Suspect]
     Indication: NEURALGIA
     Dosage: 50 MG, 3X/DAY
     Route: 048
     Dates: start: 20100216
  2. MS CONTIN [Concomitant]
     Dosage: 30 MG, 4X/DAY
  3. PERCOCET [Concomitant]
     Dosage: 7.5 MG, 3X/DAY
  4. ROBAXIN [Concomitant]
     Indication: MUSCLE SPASMS
     Dosage: 750 MG, UNK
  5. DIAZEPAM [Concomitant]
     Indication: STRESS
     Dosage: 10 MG, 3X/DAY
  6. DIAZEPAM [Concomitant]
     Indication: ANXIETY

REACTIONS (6)
  - ANXIETY [None]
  - BACK PAIN [None]
  - MUSCULOSKELETAL PAIN [None]
  - NON-CARDIAC CHEST PAIN [None]
  - RHEUMATOID ARTHRITIS [None]
  - STRESS [None]
